FAERS Safety Report 25023775 (Version 1)
Quarter: 2025Q1

REPORT INFORMATION
  Report Type: Spontaneous
  Country: US (occurrence: None)
  Receive Date: 20250228
  Receipt Date: 20250228
  Transmission Date: 20250409
  Serious: Yes (Hospitalization)
  Sender: FDA-CTU
  Company Number: None

PATIENT
  Age: 71 Year
  Sex: Male
  Weight: 123 kg

DRUGS (1)
  1. SEMAGLUTIDE [Suspect]
     Active Substance: SEMAGLUTIDE
     Indication: Diabetes mellitus
     Route: 058
     Dates: end: 20241118

REACTIONS (7)
  - Enteritis [None]
  - Constipation [None]
  - Diarrhoea [None]
  - Small intestinal obstruction [None]
  - Dyspnoea [None]
  - Eructation [None]
  - Back pain [None]

NARRATIVE: CASE EVENT DATE: 20241127
